FAERS Safety Report 11040851 (Version 3)
Quarter: 2015Q3

REPORT INFORMATION
  Report Type: Spontaneous
  Country: US (occurrence: US)
  Receive Date: 20150416
  Receipt Date: 20150818
  Transmission Date: 20151125
  Serious: Yes (Death, Other)
  Sender: FDA-Public Use
  Company Number: US-ASTRAZENECA-2014SE59172

PATIENT
  Age: 23052 Day
  Sex: Male
  Weight: 71.2 kg

DRUGS (30)
  1. BYETTA [Suspect]
     Active Substance: EXENATIDE
     Dosage: FEB 2009 - OCT 2011 AND AGAIN IN 2012
     Route: 065
     Dates: start: 200902
  2. FLAGYL [Concomitant]
     Active Substance: METRONIDAZOLE\METRONIDAZOLE HYDROCHLORIDE
     Route: 065
  3. COLACE [Concomitant]
     Active Substance: DOCUSATE SODIUM
     Route: 065
  4. PRAMIPEXOLE. [Concomitant]
     Active Substance: PRAMIPEXOLE
     Route: 065
  5. FOLIC ACID. [Concomitant]
     Active Substance: FOLIC ACID
     Route: 048
  6. BYETTA [Suspect]
     Active Substance: EXENATIDE
     Route: 065
     Dates: start: 200901
  7. NOVOLOG [Concomitant]
     Active Substance: INSULIN ASPART
     Route: 065
     Dates: start: 20111012
  8. AMBIEN [Concomitant]
     Active Substance: ZOLPIDEM TARTRATE
     Route: 065
  9. GLIMEPIRIDE. [Concomitant]
     Active Substance: GLIMEPIRIDE
     Route: 065
     Dates: start: 20100701
  10. LASIX [Concomitant]
     Active Substance: FUROSEMIDE
     Route: 065
  11. MEVACOR [Concomitant]
     Active Substance: LOVASTATIN
     Route: 048
  12. PANTOPRAZOLE [Concomitant]
     Active Substance: PANTOPRAZOLE SODIUM
     Route: 065
     Dates: start: 1993
  13. MORPHINE [Concomitant]
     Active Substance: MORPHINE
     Route: 065
     Dates: start: 20130610
  14. SIMVASTATIN. [Concomitant]
     Active Substance: SIMVASTATIN
     Dosage: TAKE 1 TABLET DAILY.
     Route: 065
  15. LEVAQUIN [Concomitant]
     Active Substance: LEVOFLOXACIN
     Route: 048
  16. BYETTA [Suspect]
     Active Substance: EXENATIDE
     Route: 065
     Dates: start: 201001
  17. LISINOPRIL. [Concomitant]
     Active Substance: LISINOPRIL
     Route: 065
     Dates: start: 20100310
  18. MIRAPEX [Concomitant]
     Active Substance: PRAMIPEXOLE DIHYDROCHLORIDE
     Route: 065
     Dates: start: 20090109
  19. CRESTOR [Concomitant]
     Active Substance: ROSUVASTATIN CALCIUM
     Route: 065
     Dates: start: 20121106
  20. LEVEMIR [Concomitant]
     Active Substance: INSULIN DETEMIR
  21. WELLBUTRIN [Concomitant]
     Active Substance: BUPROPION HYDROCHLORIDE
     Dosage: 150 MILLIGRAMS BID
     Route: 065
  22. NAMENDA [Concomitant]
     Active Substance: MEMANTINE HYDROCHLORIDE
     Route: 065
  23. AMLODIPINE [Concomitant]
     Active Substance: AMLODIPINE BESYLATE
     Route: 048
  24. ASPIRIN. [Concomitant]
     Active Substance: ASPIRIN
     Route: 065
     Dates: start: 20080808
  25. KLONOPIN [Concomitant]
     Active Substance: CLONAZEPAM
     Route: 065
  26. HYDRALAZINE [Concomitant]
     Active Substance: HYDRALAZINE HYDROCHLORIDE
     Route: 048
  27. OXYCODONE [Concomitant]
     Active Substance: OXYCODONE
     Route: 065
  28. GLUCOTROL [Concomitant]
     Active Substance: GLIPIZIDE
     Route: 048
  29. METFORMIN [Concomitant]
     Active Substance: METFORMIN HYDROCHLORIDE
     Route: 065
     Dates: start: 20120318
  30. CETIRIZINE [Concomitant]
     Active Substance: CETIRIZINE HYDROCHLORIDE
     Dosage: 1 TAB ORAL BEDTIME
     Route: 065
     Dates: start: 20130227

REACTIONS (8)
  - Infection [Unknown]
  - Adenocarcinoma pancreas [Fatal]
  - Prostatomegaly [Unknown]
  - Jaundice cholestatic [Unknown]
  - Anxiety [Unknown]
  - Depression [Unknown]
  - Colon cancer [Unknown]
  - Metastases to liver [Unknown]

NARRATIVE: CASE EVENT DATE: 20121106
